FAERS Safety Report 23955931 (Version 1)
Quarter: 2024Q2

REPORT INFORMATION
  Report Type: Spontaneous
  Country: NL (occurrence: NL)
  Receive Date: 20240610
  Receipt Date: 20240610
  Transmission Date: 20240715
  Serious: Yes (Life-Threatening, Disabling, Other)
  Sender: FDA-Public Use
  Company Number: NL-LRB-00979107

PATIENT
  Age: 58 Year
  Sex: Male
  Weight: 72 kg

DRUGS (1)
  1. PANTOPRAZOLE [Suspect]
     Active Substance: PANTOPRAZOLE
     Indication: Gastric pH decreased
     Dosage: 40 MILLIGRAM, TWO TIMES A DAY
     Route: 065
     Dates: start: 20090501, end: 20100901

REACTIONS (5)
  - Oesophageal carcinoma [Recovered/Resolved]
  - Barrett^s oesophagus [Recovered/Resolved]
  - Product substitution issue [Unknown]
  - Dyspepsia [Recovered/Resolved]
  - Reaction to excipient [Recovered/Resolved]
